FAERS Safety Report 4677474-4 (Version None)
Quarter: 2005Q2

REPORT INFORMATION
  Report Type: 
  Country: None (occurrence: None)
  Receive Date: 20050526
  Receipt Date: 20050526
  Transmission Date: 20051028
  Serious: Yes (Hospitalization)
  Sender: FDA-Public Use
  Company Number: None

PATIENT
  Age: 60 Year
  Sex: Male
  Weight: 84.8226 kg

DRUGS (2)
  1. ACETAMINOPHEN, ASPIRIN AND CAFFEINE [Suspect]
     Indication: HEADACHE
     Dosage: 250 MG PO QD
     Route: 048
  2. ALKA-SELTZER (ASPIRIN, SODIUM BICARBONATE, AND CITRIC ACID) [Suspect]
     Dosage: 325 MG PO QD
     Route: 048

REACTIONS (4)
  - ABDOMINAL PAIN [None]
  - ASTHENIA [None]
  - DIZZINESS POSTURAL [None]
  - FAECES DISCOLOURED [None]
